FAERS Safety Report 12774918 (Version 4)
Quarter: 2017Q1

REPORT INFORMATION
  Report Type: Spontaneous
  Country: DE (occurrence: DE)
  Receive Date: 20160923
  Receipt Date: 20170117
  Transmission Date: 20170428
  Serious: Yes (Life-Threatening, Hospitalization, Disabling, Other)
  Sender: FDA-Public Use
  Company Number: DE-009507513-1609DEU009649

PATIENT
  Age: 39 Year
  Sex: Female
  Weight: 76 kg

DRUGS (1)
  1. NUVARING [Suspect]
     Active Substance: ETHINYL ESTRADIOL\ETONOGESTREL
     Indication: CONTRACEPTION
     Dosage: ACCORDING TO THE USE INSTRUCTIONS
     Route: 067
     Dates: start: 20160201, end: 201608

REACTIONS (8)
  - Musculoskeletal discomfort [Unknown]
  - Nausea [Unknown]
  - Pulmonary embolism [Recovering/Resolving]
  - Pleural effusion [Recovering/Resolving]
  - Faecaloma [Unknown]
  - Pneumonia [Recovering/Resolving]
  - Folate deficiency [Recovering/Resolving]
  - Headache [Unknown]

NARRATIVE: CASE EVENT DATE: 2016
